FAERS Safety Report 8392747 (Version 6)
Quarter: 2012Q4

REPORT INFORMATION
  Report Type: 
  Country: US (occurrence: US)
  Receive Date: 20120206
  Receipt Date: 20121218
  Transmission Date: 20130627
  Serious: Yes (Life-Threatening, Hospitalization, Other)
  Sender: FDA-Public Use
  Company Number: US-ASTRAZENECA-2012SE06985

PATIENT
  Age: 50 Year
  Sex: Male
  Weight: 84.8 kg

DRUGS (22)
  1. SEROQUEL [Suspect]
     Indication: MAJOR DEPRESSION
     Route: 048
     Dates: start: 2003
  2. SEROQUEL [Suspect]
     Indication: BIPOLAR DISORDER
     Route: 048
     Dates: start: 2003
  3. SEROQUEL [Suspect]
     Indication: TACHYPHRENIA
     Route: 048
     Dates: start: 2003
  4. SEROQUEL [Suspect]
     Indication: MAJOR DEPRESSION
     Route: 048
  5. SEROQUEL [Suspect]
     Indication: BIPOLAR DISORDER
     Route: 048
  6. SEROQUEL [Suspect]
     Indication: TACHYPHRENIA
     Route: 048
  7. SEROQUEL [Suspect]
     Indication: MAJOR DEPRESSION
     Route: 048
  8. SEROQUEL [Suspect]
     Indication: BIPOLAR DISORDER
     Route: 048
  9. SEROQUEL [Suspect]
     Indication: TACHYPHRENIA
     Route: 048
  10. SEROQUEL [Suspect]
     Indication: MAJOR DEPRESSION
     Route: 048
  11. SEROQUEL [Suspect]
     Indication: BIPOLAR DISORDER
     Route: 048
  12. SEROQUEL [Suspect]
     Indication: TACHYPHRENIA
     Route: 048
  13. SEROQUEL [Suspect]
     Indication: MAJOR DEPRESSION
     Dosage: GENERIC
     Route: 048
  14. SEROQUEL [Suspect]
     Indication: BIPOLAR DISORDER
     Dosage: GENERIC
     Route: 048
  15. SEROQUEL [Suspect]
     Indication: TACHYPHRENIA
     Dosage: GENERIC
     Route: 048
  16. SEROQUEL [Suspect]
     Indication: MAJOR DEPRESSION
     Dosage: GENERIC
     Route: 048
  17. SEROQUEL [Suspect]
     Indication: BIPOLAR DISORDER
     Dosage: GENERIC
     Route: 048
  18. SEROQUEL [Suspect]
     Indication: TACHYPHRENIA
     Dosage: GENERIC
     Route: 048
  19. PRILOSEC [Concomitant]
     Dosage: DAILY
     Route: 048
  20. TRAZADONE [Concomitant]
  21. SIMVASTATIN [Concomitant]
     Dosage: DAILY
  22. LEXAPRO [Concomitant]

REACTIONS (14)
  - Alcoholism [Unknown]
  - Coma [Unknown]
  - Influenza [Unknown]
  - Pancreatitis [Unknown]
  - Depression [Unknown]
  - Hepatic steatosis [Unknown]
  - Learning disability [Unknown]
  - Malaise [Unknown]
  - Mental retardation [Unknown]
  - Tachyphrenia [Unknown]
  - Therapeutic response unexpected [Unknown]
  - Off label use [Unknown]
  - Drug dose omission [Unknown]
  - Drug ineffective [Unknown]
